FAERS Safety Report 11198634 (Version 1)
Quarter: 2015Q2

REPORT INFORMATION
  Report Type: Spontaneous
  Country: IT (occurrence: IT)
  Receive Date: 20150618
  Receipt Date: 20150618
  Transmission Date: 20150821
  Serious: Yes (Other)
  Sender: FDA-Public Use
  Company Number: IT-ROCHE-1541888

PATIENT
  Age: 65 Year
  Sex: Male
  Weight: 81 kg

DRUGS (8)
  1. ENDOXAN BAXTER [Suspect]
     Active Substance: CYCLOPHOSPHAMIDE
     Indication: B-CELL LYMPHOMA
     Route: 042
     Dates: start: 20140819, end: 20140820
  2. ALLOPURINOL. [Concomitant]
     Active Substance: ALLOPURINOL
     Indication: HYPERURICAEMIA
     Route: 048
  3. MABTHERA [Suspect]
     Active Substance: RITUXIMAB
     Indication: B-CELL LYMPHOMA
     Route: 042
     Dates: start: 20140828, end: 20140828
  4. ADRIBLASTINA [Suspect]
     Active Substance: DOXORUBICIN HYDROCHLORIDE
     Indication: B-CELL LYMPHOMA
     Dosage: 50 MG/25 ML FOR INTRAVENOUS USE1 X25 ML BOTTLE
     Route: 042
     Dates: start: 20140820, end: 20140820
  5. PREDNISONE. [Concomitant]
     Active Substance: PREDNISONE
     Route: 042
     Dates: start: 20140820, end: 20140820
  6. VINCRISTINA [Suspect]
     Active Substance: VINCRISTINE
     Indication: B-CELL LYMPHOMA
     Dosage: 1 MG/MLSOLUTION FOR INJECTION FOR INTRAVENOUS USE 1 X1 ML BOTTLE
     Route: 042
     Dates: start: 20140819, end: 20140819
  7. PREDNISONE. [Concomitant]
     Active Substance: PREDNISONE
     Indication: B-CELL LYMPHOMA
     Route: 048
     Dates: start: 20140821, end: 20140823
  8. PANTOPRAZOLE [Concomitant]
     Active Substance: PANTOPRAZOLE SODIUM
     Indication: GASTRITIS PROPHYLAXIS
     Route: 048

REACTIONS (1)
  - Paraesthesia [Recovering/Resolving]

NARRATIVE: CASE EVENT DATE: 20140901
